FAERS Safety Report 8040822-1 (Version None)
Quarter: 2012Q1

REPORT INFORMATION
  Report Type: 
  Country: None (occurrence: None)
  Receive Date: 20120112
  Receipt Date: 20120106
  Transmission Date: 20120608
  Serious: Yes (Other)
  Sender: FDA-Public Use
  Company Number: US-BRISTOL-MYERS SQUIBB COMPANY-16335564

PATIENT
  Age: 82 Year
  Sex: Female

DRUGS (2)
  1. ERBITUX [Suspect]
  2. WARFARIN SODIUM [Suspect]

REACTIONS (3)
  - NASOPHARYNGITIS [None]
  - THROMBOSIS [None]
  - ASTHENIA [None]
